FAERS Safety Report 14319221 (Version 1)
Quarter: 2017Q4

REPORT INFORMATION
  Report Type: Spontaneous
  Country: US (occurrence: US)
  Receive Date: 20171221
  Receipt Date: 20171221
  Transmission Date: 20180321
  Serious: No
  Sender: FDA-Public Use
  Company Number: None

PATIENT
  Sex: Female

DRUGS (16)
  1. XERAC [Concomitant]
  2. BIOTIN [Concomitant]
     Active Substance: BIOTIN
  3. SYNTHROID [Concomitant]
     Active Substance: LEVOTHYROXINE SODIUM
  4. VITAMIN D3 [Concomitant]
     Active Substance: CHOLECALCIFEROL
  5. MULTI COMPLETE [Concomitant]
  6. BENADRYL [Concomitant]
     Active Substance: DIPHENHYDRAMINE HYDROCHLORIDE
  7. FISH OIL [Concomitant]
     Active Substance: FISH OIL
  8. TEA TREE OIL. [Concomitant]
     Active Substance: TEA TREE OIL
  9. CHOLINE [Concomitant]
     Active Substance: CHOLINE
  10. XARELTO [Concomitant]
     Active Substance: RIVAROXABAN
  11. XANAX [Concomitant]
     Active Substance: ALPRAZOLAM
  12. METOPROLOL. [Suspect]
     Active Substance: METOPROLOL
     Indication: CHRONIC MYELOID LEUKAEMIA
     Route: 048
     Dates: start: 201407
  13. CALCIUM+D [Concomitant]
     Active Substance: CALCIUM\VITAMIN D
  14. TASIGNA [Concomitant]
     Active Substance: NILOTINIB
  15. DILTIAZEM. [Concomitant]
     Active Substance: DILTIAZEM
  16. ARANESP [Concomitant]
     Active Substance: DARBEPOETIN ALFA

REACTIONS (3)
  - Oedema peripheral [None]
  - Weight increased [None]
  - Fatigue [None]
